FAERS Safety Report 7639435-2 (Version None)
Quarter: 2011Q3

REPORT INFORMATION
  Report Type: 
  Country: None (occurrence: None)
  Receive Date: 20110727
  Receipt Date: 20110701
  Transmission Date: 20111222
  Serious: Yes (Death, Hospitalization)
  Sender: FDA-Public Use
  Company Number: US-GLAXOSMITHKLINE-A0870460A

PATIENT
  Age: 74 Year
  Sex: Male

DRUGS (1)
  1. AVANDIA [Suspect]
     Indication: DIABETES MELLITUS
     Dosage: 8MG PER DAY
     Route: 048
     Dates: start: 20010101, end: 20050708

REACTIONS (16)
  - GAIT DISTURBANCE [None]
  - VENTRICULAR TACHYCARDIA [None]
  - VENTRICULAR FIBRILLATION [None]
  - CARDIAC FAILURE [None]
  - DYSARTHRIA [None]
  - VENTRICULAR EXTRASYSTOLES [None]
  - CARDIAC FAILURE CONGESTIVE [None]
  - CARDIAC SEPTAL DEFECT [None]
  - BRADYCARDIA [None]
  - ISCHAEMIC CARDIOMYOPATHY [None]
  - CARDIAC ARREST [None]
  - CEREBROVASCULAR ACCIDENT [None]
  - TRANSIENT ISCHAEMIC ATTACK [None]
  - ACUTE MYOCARDIAL INFARCTION [None]
  - PULMONARY OEDEMA [None]
  - CORONARY ARTERY DISEASE [None]
